FAERS Safety Report 14774476 (Version 1)
Quarter: 2018Q2

REPORT INFORMATION
  Report Type: Spontaneous
  Country: AU (occurrence: AU)
  Receive Date: 20180418
  Receipt Date: 20180418
  Transmission Date: 20180711
  Serious: Yes (Other)
  Sender: FDA-Public Use
  Company Number: PHHY2018AU066496

PATIENT
  Age: 63 Year
  Sex: Female

DRUGS (4)
  1. SPIRIVA [Concomitant]
     Active Substance: TIOTROPIUM BROMIDE MONOHYDRATE
     Indication: ASTHMA
     Dosage: 5 U, QD
     Route: 065
  2. FLUTIFORM [Concomitant]
     Active Substance: FLUTICASONE PROPIONATE\FORMOTEROL FUMARATE
     Indication: ASTHMA
     Dosage: UNK UNK, BID
     Route: 065
  3. PERINDOPRIL [Suspect]
     Active Substance: PERINDOPRIL
     Indication: HYPERTENSION
     Dosage: 8 MG, QD
     Route: 065
     Dates: start: 2017
  4. PANTOPRAZOLE [Suspect]
     Active Substance: PANTOPRAZOLE
     Indication: GASTROOESOPHAGEAL REFLUX DISEASE
     Dosage: 40 MG, QD
     Route: 065
     Dates: start: 2017

REACTIONS (7)
  - Glomerular filtration rate increased [Unknown]
  - Lymphocyte count decreased [Unknown]
  - Blood bicarbonate increased [Unknown]
  - Rhinitis [Unknown]
  - White blood cell count decreased [Unknown]
  - Atypical mycobacterial infection [Unknown]
  - Neutropenia [Unknown]

NARRATIVE: CASE EVENT DATE: 2017
